FAERS Safety Report 25974272 (Version 1)
Quarter: 2025Q4

REPORT INFORMATION
  Report Type: Report from Study
  Country: US (occurrence: US)
  Receive Date: 20251029
  Receipt Date: 20251029
  Transmission Date: 20260118
  Serious: No
  Sender: BIOVITRUM
  Company Number: US-BIOVITRUM-2025-US-014740

PATIENT
  Age: 28 Year
  Sex: Female

DRUGS (1)
  1. KINERET [Suspect]
     Active Substance: ANAKINRA
     Indication: Autoinflammatory disease
     Dosage: DAILY
     Route: 058
     Dates: start: 20251007

REACTIONS (7)
  - Injection site urticaria [Unknown]
  - Therapeutic response shortened [Unknown]
  - Malaise [Unknown]
  - Product dose omission issue [Unknown]
  - Injection site erythema [Not Recovered/Not Resolved]
  - Intentional product misuse [Not Recovered/Not Resolved]
  - Injection site pruritus [Recovering/Resolving]

NARRATIVE: CASE EVENT DATE: 20251007
